FAERS Safety Report 5578730-8 (Version None)
Quarter: 2007Q4

REPORT INFORMATION
  Report Type: 
  Country: None (occurrence: None)
  Receive Date: 20071227
  Receipt Date: 20071213
  Transmission Date: 20080405
  Serious: Yes (Disabling)
  Sender: FDA-Public Use
  Company Number: 2007JP005170

PATIENT
  Age: 59 Year
  Sex: Male
  Weight: 61.4 kg

DRUGS (8)
  1. PROGRAF [Suspect]
     Indication: LIVER TRANSPLANT
     Dosage: 2 MG, BID, ORAL
     Route: 048
     Dates: start: 20070122
  2. PREDONININE (PREDNISOLONE) [Concomitant]
  3. CELLCEPT [Concomitant]
  4. LAMIVUDINE [Concomitant]
  5. AMLODIPINE BESYLATE [Concomitant]
  6. URSO 250 [Concomitant]
  7. RABEPRAZOLE SODIUM [Concomitant]
  8. BAKTAR (SULFAMETHOXAZOLE, TRIMETHOPRIM) [Concomitant]

REACTIONS (2)
  - FOCAL SEGMENTAL GLOMERULOSCLEROSIS [None]
  - NEPHROTIC SYNDROME [None]
